FAERS Safety Report 11322045 (Version 1)
Quarter: 2015Q3

REPORT INFORMATION
  Report Type: Spontaneous
  Country: FR (occurrence: FR)
  Receive Date: 20150729
  Receipt Date: 20150729
  Transmission Date: 20151125
  Serious: Yes (Hospitalization)
  Sender: FDA-Public Use
  Company Number: FR-HOSPIRA-2836916

PATIENT
  Age: 15 Year
  Sex: Female
  Weight: 65 kg

DRUGS (1)
  1. CARBOPLATIN TEVA [Suspect]
     Active Substance: CARBOPLATIN
     Indication: BRAIN NEOPLASM
     Route: 042
     Dates: start: 20061023, end: 20061023

REACTIONS (4)
  - Dermatitis exfoliative [Recovered/Resolved]
  - Urticaria [Recovered/Resolved]
  - Pyrexia [Recovered/Resolved]
  - Chills [Recovered/Resolved]

NARRATIVE: CASE EVENT DATE: 20061023
